FAERS Safety Report 16819878 (Version 1)
Quarter: 2019Q3

REPORT INFORMATION
  Report Type: Spontaneous
  Country: FR (occurrence: FR)
  Receive Date: 20190917
  Receipt Date: 20190917
  Transmission Date: 20191005
  Serious: Yes (Other)
  Sender: FDA-Public Use
  Company Number: PHHY2019FR215443

PATIENT
  Age: 34 Year
  Sex: Female

DRUGS (2)
  1. DUPHASTON [Suspect]
     Active Substance: DYDROGESTERONE
     Indication: HORMONE REPLACEMENT THERAPY
     Dosage: 4 DF, QD
     Route: 048
     Dates: start: 20190525, end: 20190612
  2. VIVELLE-DOT [Suspect]
     Active Substance: ESTRADIOL
     Indication: HORMONE REPLACEMENT THERAPY
     Dosage: 2 DF, QW
     Route: 062
     Dates: start: 20190509, end: 20190612

REACTIONS (2)
  - Hepatocellular injury [Recovering/Resolving]
  - Blood alkaline phosphatase increased [Unknown]

NARRATIVE: CASE EVENT DATE: 20190612
